FAERS Safety Report 7126202-1 (Version None)
Quarter: 2010Q4

REPORT INFORMATION
  Report Type: 
  Country: None (occurrence: None)
  Receive Date: 20101129
  Receipt Date: 20101118
  Transmission Date: 20110411
  Serious: Yes (Other)
  Sender: FDA-Public Use
  Company Number: CA-JNJFOC-20101108366

PATIENT
  Sex: Female
  Weight: 63.4 kg

DRUGS (4)
  1. REMICADE [Suspect]
     Indication: RHEUMATOID ARTHRITIS
     Dosage: INFUSION # 23
     Route: 042
  2. REMICADE [Suspect]
     Route: 042
  3. REMICADE [Suspect]
     Dosage: DOSE EVERY 6-8 WEEKS
     Route: 042
  4. METHOTREXATE [Concomitant]
     Route: 048

REACTIONS (2)
  - ANKLE OPERATION [None]
  - UPPER RESPIRATORY TRACT INFECTION [None]
